FAERS Safety Report 5855024-4 (Version None)
Quarter: 2008Q3

REPORT INFORMATION
  Report Type: 
  Country: None (occurrence: None)
  Receive Date: 20080822
  Receipt Date: 20080506
  Transmission Date: 20090109
  Serious: No
  Sender: FDA-Public Use
  Company Number: US-ABBOTT-08P-163-0451099-00

PATIENT
  Sex: Female
  Weight: 63.56 kg

DRUGS (5)
  1. SYNTHROID [Suspect]
     Indication: AUTOIMMUNE THYROIDITIS
     Route: 048
     Dates: start: 20060901, end: 20061201
  2. SYNTHROID [Suspect]
     Route: 048
     Dates: start: 20060601, end: 20060701
  3. SYNTHROID [Suspect]
     Route: 048
     Dates: start: 20060701, end: 20060901
  4. SYNTHROID [Suspect]
     Route: 048
     Dates: start: 20061201
  5. VITAMIN TAB [Concomitant]
     Indication: VITAMIN SUPPLEMENTATION
     Route: 048
     Dates: start: 20071001

REACTIONS (2)
  - BLOOD THYROID STIMULATING HORMONE ABNORMAL [None]
  - PALPITATIONS [None]
